FAERS Safety Report 10052711 (Version 1)
Quarter: 2014Q2

REPORT INFORMATION
  Report Type: Spontaneous
  Country: CL (occurrence: CL)
  Receive Date: 20140402
  Receipt Date: 20140402
  Transmission Date: 20141212
  Serious: Yes (Other)
  Sender: FDA-Public Use
  Company Number: CL-PFIZER INC-2014090029

PATIENT
  Age: 69 Year
  Sex: Female

DRUGS (7)
  1. MEDROL [Suspect]
     Dosage: 6 MG, 1X/DAY
     Route: 048
     Dates: start: 1964
  2. XALATAN [Concomitant]
     Indication: DRY EYE
     Dosage: 1 DROP, 1X/DAY
     Route: 047
     Dates: start: 2011
  3. INSULIN [Concomitant]
     Dosage: UNK
  4. AMLODIPINE [Concomitant]
     Dosage: UNK
  5. CARVEDILOL [Concomitant]
     Dosage: UNK
  6. ASPIRIN ^BAYER^ [Concomitant]
     Dosage: UNK
  7. GLAFORNIL [Concomitant]
     Dosage: UNK

REACTIONS (8)
  - Hypertension [Not Recovered/Not Resolved]
  - Diabetes mellitus [Not Recovered/Not Resolved]
  - Cardiac disorder [Unknown]
  - Retinal injury [Unknown]
  - Blood glucose increased [Not Recovered/Not Resolved]
  - Nervousness [Unknown]
  - Eye injury [Unknown]
  - Arthralgia [Not Recovered/Not Resolved]
